FAERS Safety Report 9223393 (Version 1)
Quarter: 2013Q2

REPORT INFORMATION
  Report Type: Spontaneous
  Country: GB (occurrence: GB)
  Receive Date: 20130410
  Receipt Date: 20130410
  Transmission Date: 20140414
  Serious: Yes (Other)
  Sender: FDA-Public Use
  Company Number: GB-TEVA-396496ISR

PATIENT
  Age: 66 Year
  Sex: Male
  Weight: 75.5 kg

DRUGS (4)
  1. INDAPAMIDE [Suspect]
     Indication: HYPERTENSION
     Route: 048
     Dates: start: 20130308, end: 20130325
  2. DILTIAZEM [Concomitant]
     Dosage: 240 MILLIGRAM DAILY;
  3. CANDESARTAN [Concomitant]
  4. ASPIRIN [Concomitant]
     Dosage: 75 MILLIGRAM DAILY;

REACTIONS (1)
  - Lacrimation increased [Unknown]
